FAERS Safety Report 6730147-6 (Version None)
Quarter: 2010Q2

REPORT INFORMATION
  Report Type: 
  Country: None (occurrence: None)
  Receive Date: 20100513
  Receipt Date: 20100427
  Transmission Date: 20101027
  Serious: Yes (Other)
  Sender: FDA-Public Use
  Company Number: 2010S1002625

PATIENT
  Age: 57 Year
  Sex: Female

DRUGS (9)
  1. PHOSPHOSODA FLAVOR NOT SPECIFIED [Suspect]
     Indication: COLONOSCOPY
     Dosage: PO
     Route: 048
     Dates: start: 20060927
  2. TYLOX /00446701/ [Concomitant]
  3. OXYCODONE [Concomitant]
  4. IBUPROFEN [Concomitant]
  5. FENTANYL [Concomitant]
  6. VERAPAMIL [Concomitant]
  7. LYRICA [Concomitant]
  8. PRILOSEC /00661201/ [Concomitant]
  9. ALBUTEROL [Concomitant]

REACTIONS (1)
  - RENAL DISORDER [None]
